FAERS Safety Report 17806985 (Version 1)
Quarter: 2020Q2

REPORT INFORMATION
  Report Type: Spontaneous
  Country: US (occurrence: US)
  Receive Date: 20200520
  Receipt Date: 20200520
  Transmission Date: 20200714
  Serious: Yes (Hospitalization)
  Sender: FDA-Public Use
  Company Number: None

PATIENT
  Age: 10 Year
  Sex: Male
  Weight: 35 kg

DRUGS (6)
  1. CYCLOPHOSPHAMI [Suspect]
     Active Substance: CYCLOPHOSPHAMIDE
     Dates: end: 20200504
  2. MERCAPTOPURINE. [Suspect]
     Active Substance: MERCAPTOPURINE
     Dates: end: 20200517
  3. VINCRISTINE SULFATE. [Suspect]
     Active Substance: VINCRISTINE SULFATE
     Dates: end: 20200518
  4. CYTARABINE. [Suspect]
     Active Substance: CYTARABINE
     Dates: end: 20200514
  5. METHOTREXATE. [Suspect]
     Active Substance: METHOTREXATE
     Dates: end: 20200518
  6. ONCASPAR [Suspect]
     Active Substance: PEGASPARGASE
     Dates: end: 20200518

REACTIONS (5)
  - Rash [None]
  - Throat tightness [None]
  - Nausea [None]
  - Dyspnoea [None]
  - Urticaria [None]

NARRATIVE: CASE EVENT DATE: 20200518
